FAERS Safety Report 12310729 (Version 8)
Quarter: 2017Q3

REPORT INFORMATION
  Report Type: Spontaneous
  Country: US (occurrence: US)
  Receive Date: 20160427
  Receipt Date: 20170822
  Transmission Date: 20171127
  Serious: Yes (Hospitalization)
  Sender: FDA-Public Use
  Company Number: US-ACTELION-A-US2016-134992

PATIENT
  Age: 77 Year
  Sex: Male
  Weight: 86.17 kg

DRUGS (5)
  1. ADEMPAS [Concomitant]
     Active Substance: RIOCIGUAT
  2. TRACLEER [Suspect]
     Active Substance: BOSENTAN
     Indication: PULMONARY ARTERIAL HYPERTENSION
     Dosage: 62.5 MG, UNK
     Route: 048
  3. OXYGEN. [Concomitant]
     Active Substance: OXYGEN
  4. TRACLEER [Suspect]
     Active Substance: BOSENTAN
     Dosage: 125 MG, BID
     Route: 048
  5. TYVASO [Suspect]
     Active Substance: TREPROSTINIL
     Indication: PULMONARY ARTERIAL HYPERTENSION
     Dosage: 18-72 MCG, QID
     Route: 055
     Dates: start: 20111018

REACTIONS (15)
  - Acute myocardial infarction [Recovering/Resolving]
  - Dyspnoea [Unknown]
  - Right ventricular failure [Recovering/Resolving]
  - Ascites [Recovering/Resolving]
  - Dyspnoea exertional [Unknown]
  - Condition aggravated [Unknown]
  - Troponin increased [Recovering/Resolving]
  - Pneumonia [Unknown]
  - Pulmonary arterial hypertension [Unknown]
  - Oxygen saturation decreased [Unknown]
  - Syncope [Unknown]
  - Hypotension [Unknown]
  - Hypoxia [Recovering/Resolving]
  - Loss of consciousness [Unknown]
  - Drug dose omission [Unknown]

NARRATIVE: CASE EVENT DATE: 201410
